FAERS Safety Report 5512905-9 (Version None)
Quarter: 2007Q4

REPORT INFORMATION
  Report Type: 
  Country: None (occurrence: None)
  Receive Date: 20071112
  Receipt Date: 20071106
  Transmission Date: 20080405
  Serious: Yes (Other)
  Sender: FDA-Public Use
  Company Number: B0491140A

PATIENT
  Sex: Female

DRUGS (3)
  1. PAXIL [Suspect]
     Indication: DEPRESSION
     Dosage: 40MG PER DAY
     Route: 048
     Dates: start: 20071004
  2. TOLEDOMIN [Concomitant]
     Indication: DEPRESSION
     Route: 048
     Dates: start: 20060421, end: 20070912
  3. LITHIUM CARBONATE [Concomitant]
     Indication: DEPRESSION
     Dosage: 600MG PER DAY
     Route: 048
     Dates: start: 20070718

REACTIONS (5)
  - ABNORMAL SENSATION IN EYE [None]
  - ASTHENOPIA [None]
  - DRUG WITHDRAWAL SYNDROME [None]
  - EXCESSIVE EYE BLINKING [None]
  - MANIA [None]
